FAERS Safety Report 7069083-7 (Version None)
Quarter: 2010Q4

REPORT INFORMATION
  Report Type: 
  Country: None (occurrence: None)
  Receive Date: 20101028
  Receipt Date: 20101019
  Transmission Date: 20110411
  Serious: Yes (Hospitalization, Other)
  Sender: FDA-Public Use
  Company Number: US-JNJCH-2010010838

PATIENT
  Sex: Female
  Weight: 11.3 kg

DRUGS (5)
  1. CHILDREN'S ZYRTEC ALLERGY [Suspect]
     Indication: NASAL CONGESTION
     Dosage: TEXT:AS DIRECTED
     Route: 048
  2. CHILDREN'S TYLENOL SUSPENSION [Suspect]
     Indication: PYREXIA
     Dosage: TEXT:AS DIRECTED
     Route: 048
  3. CHILDREN'S MOTRIN [Suspect]
     Indication: PYREXIA
     Dosage: TEXT:AS DIRECTED
     Route: 048
  4. DIPHENHYDRAMINE HCL [Suspect]
     Indication: PYREXIA
     Dosage: TEXT:AS DIRECTED
     Route: 048
  5. AUGMENTIN '125' [Concomitant]
     Indication: OTITIS MEDIA
     Dosage: TEXT:ONE TEASPOONFUL BID FOR TEN DAYS
     Route: 048

REACTIONS (2)
  - ERYTHEMA MULTIFORME [None]
  - PRODUCT QUALITY ISSUE [None]
